FAERS Safety Report 8180762-0 (Version None)
Quarter: 2012Q1

REPORT INFORMATION
  Report Type: 
  Country: None (occurrence: None)
  Receive Date: 20120301
  Receipt Date: 20120301
  Transmission Date: 20120608
  Serious: No
  Sender: FDA-Public Use
  Company Number: None

PATIENT
  Age: 66 Year
  Sex: Female
  Weight: 81.6475 kg

DRUGS (1)
  1. WELCHOL [Suspect]
     Dosage: 1 PACKET ONCE ONLY BECAUSE OF AFTER EFFECT
     Dates: start: 20120206

REACTIONS (3)
  - LOSS OF CONSCIOUSNESS [None]
  - VOMITING [None]
  - DIZZINESS [None]
